FAERS Safety Report 16977596 (Version 1)
Quarter: 2019Q4

REPORT INFORMATION
  Report Type: Spontaneous
  Country: US (occurrence: US)
  Receive Date: 20191031
  Receipt Date: 20191031
  Transmission Date: 20200122
  Serious: No
  Sender: FDA-Public Use
  Company Number: US-TEVA-2019-US-1131289

PATIENT

DRUGS (2)
  1. AMOXICILLIN. [Suspect]
     Active Substance: AMOXICILLIN
     Indication: TOOTH DISORDER
     Dosage: PAST 30 YEARS WITHOUT ANY ADVERSE EFFECTS
     Route: 065
  2. AMOXICILLIN. [Suspect]
     Active Substance: AMOXICILLIN
     Dosage: TOOK THE USUAL DOSAGE FROM A PRESCRIPTION COUPLE OF DAYS AGO
     Route: 065

REACTIONS (1)
  - Drug hypersensitivity [Unknown]
